FAERS Safety Report 21600987 (Version 2)
Quarter: 2022Q4

REPORT INFORMATION
  Report Type: Spontaneous
  Country: ES (occurrence: ES)
  Receive Date: 20221116
  Receipt Date: 20221122
  Transmission Date: 20230112
  Serious: Yes (Other)
  Sender: FDA-Public Use
  Company Number: ES-SA-SAC20221111000359

PATIENT
  Age: 80 Year
  Sex: Female

DRUGS (1)
  1. LANTUS SOLOSTAR [Suspect]
     Active Substance: INSULIN GLARGINE
     Indication: Type 1 diabetes mellitus
     Dosage: 24 IU, QD
     Route: 058

REACTIONS (9)
  - Myocardial infarction [Unknown]
  - Polymyalgia rheumatica [Unknown]
  - Vomiting [Unknown]
  - Pain in extremity [Unknown]
  - Malaise [Unknown]
  - Hypoglycaemia [Recovered/Resolved]
  - Visual impairment [Unknown]
  - Renal surgery [Unknown]
  - Intentional dose omission [Unknown]
